FAERS Safety Report 8115105-1 (Version None)
Quarter: 2012Q1

REPORT INFORMATION
  Report Type: 
  Country: None (occurrence: None)
  Receive Date: 20120206
  Receipt Date: 20120126
  Transmission Date: 20120608
  Serious: Yes (Other)
  Sender: FDA-Public Use
  Company Number: DE-AMGEN-DEUSP2012006097

PATIENT
  Age: 70 Year
  Sex: Male

DRUGS (3)
  1. ENBREL [Suspect]
     Indication: PRODUCT USED FOR UNKNOWN INDICATION
     Dosage: UNK
  2. ARAVA [Concomitant]
     Dosage: UNK
     Dates: start: 20111101
  3. UROREC [Concomitant]
     Dosage: UNK
     Dates: start: 20120101

REACTIONS (2)
  - RETINAL DETACHMENT [None]
  - HAEMATOMA [None]
